FAERS Safety Report 8793878 (Version 1)
Quarter: 2012Q4

REPORT INFORMATION
  Report Type: 
  Country: AR (occurrence: AR)
  Receive Date: 20120917
  Receipt Date: 20120917
  Transmission Date: 20130627
  Serious: Yes (Other)
  Sender: FDA-Public Use
  Company Number: PHHY2012AR080157

PATIENT
  Sex: Female

DRUGS (2)
  1. RASILEZ [Suspect]
     Indication: HYPERTENSION
     Dosage: 300 mg, daily
     Dates: start: 2010, end: 2011
  2. RASILEZ [Suspect]
     Dosage: 300 mg, daily
     Dates: start: 2012

REACTIONS (1)
  - Cardiomegaly [Recovering/Resolving]
